FAERS Safety Report 5117452-4 (Version None)
Quarter: 2006Q3

REPORT INFORMATION
  Report Type: 
  Country: None (occurrence: None)
  Receive Date: 20060926
  Receipt Date: 20060911
  Transmission Date: 20061208
  Serious: Yes (Other)
  Sender: FDA-Public Use
  Company Number: US200609002692

PATIENT
  Age: 5 Year
  Sex: Male

DRUGS (2)
  1. ZYPREXA [Suspect]
     Dosage: ORAL
     Route: 048
     Dates: start: 20030101, end: 20030101
  2. ZYRTEC    /FRC/(CETIRIZINE HYDROCHLORIDE) [Concomitant]

REACTIONS (16)
  - ABNORMAL BEHAVIOUR [None]
  - CONVULSION [None]
  - DRUG DISPENSING ERROR [None]
  - DYSPEPSIA [None]
  - EDUCATIONAL PROBLEM [None]
  - FAECAL INCONTINENCE [None]
  - INCORRECT DOSE ADMINISTERED [None]
  - INCREASED APPETITE [None]
  - MEDICATION ERROR [None]
  - MEMORY IMPAIRMENT [None]
  - MOOD SWINGS [None]
  - ROAD TRAFFIC ACCIDENT [None]
  - SLEEP WALKING [None]
  - SOMNOLENCE [None]
  - URINARY INCONTINENCE [None]
  - WEIGHT INCREASED [None]
